FAERS Safety Report 25601637 (Version 2)
Quarter: 2025Q3

REPORT INFORMATION
  Report Type: Spontaneous
  Country: EU (occurrence: EU)
  Receive Date: 20250724
  Receipt Date: 20250801
  Transmission Date: 20251021
  Serious: No
  Sender: BIOMARIN
  Company Number: EU-SA-2024SA272418

PATIENT
  Age: 5 Year
  Sex: Male

DRUGS (6)
  1. LARONIDASE [Suspect]
     Active Substance: LARONIDASE
     Indication: Mucopolysaccharidosis I
     Dosage: 2000 IU, QW
     Dates: start: 20221114
  2. LARONIDASE [Suspect]
     Active Substance: LARONIDASE
     Dosage: 2500 IU, QOW
  3. LARONIDASE [Suspect]
     Active Substance: LARONIDASE
     Dosage: 2000 IU, QOW
  4. ACETAMINOPHEN [Concomitant]
     Active Substance: ACETAMINOPHEN
     Indication: Product used for unknown indication
     Dosage: 15 MG, QW
  5. ACETAMINOPHEN [Concomitant]
     Active Substance: ACETAMINOPHEN
  6. CETIRIZINE [Concomitant]
     Active Substance: CETIRIZINE HYDROCHLORIDE
     Indication: Product used for unknown indication
     Dosage: 10 MG, QW

REACTIONS (7)
  - Hypoacusis [Recovering/Resolving]
  - Carpal tunnel syndrome [Recovered/Resolved]
  - Nasopharyngitis [Not Recovered/Not Resolved]
  - Oropharyngeal pain [Recovering/Resolving]
  - Cough [Recovering/Resolving]
  - Rash macular [Recovering/Resolving]
  - Inappropriate schedule of product administration [Unknown]

NARRATIVE: CASE EVENT DATE: 20221114
